FAERS Safety Report 8453918 (Version 5)
Quarter: 2013Q3

REPORT INFORMATION
  Report Type: Spontaneous
  Country: US (occurrence: US)
  Receive Date: 20120312
  Receipt Date: 20130731
  Transmission Date: 20140515
  Serious: Yes (Hospitalization, Other)
  Sender: FDA-Public Use
  Company Number: US-009507513-1203USA01077

PATIENT
  Sex: Female
  Weight: 54.88 kg

DRUGS (4)
  1. FOSAMAX [Suspect]
     Indication: OSTEOPOROSIS
     Dosage: 10 MG, QD
     Route: 048
     Dates: start: 199912, end: 200712
  2. FOSAMAX [Suspect]
     Dosage: 70 MG, QW
     Dates: start: 199912, end: 200712
  3. FOSAMAX [Suspect]
     Dosage: 70 MG, UNK
     Dates: start: 20070514, end: 20071113
  4. BONIVA [Suspect]
     Indication: OSTEOPOROSIS
     Dosage: 150 MG, QM
     Dates: start: 20110509

REACTIONS (79)
  - Device failure [Unknown]
  - Polymyalgia rheumatica [Unknown]
  - Rectocele repair [Unknown]
  - Colitis [Unknown]
  - Food poisoning [Unknown]
  - Non-cardiac chest pain [Unknown]
  - Pneumonia [Unknown]
  - White blood cell count increased [Unknown]
  - Bladder operation [Unknown]
  - Mastectomy [Unknown]
  - Diverticulitis [Unknown]
  - Adverse event [Unknown]
  - Respiratory moniliasis [Unknown]
  - Sepsis [Unknown]
  - Pneumonia aspiration [Unknown]
  - Laparotomy [Unknown]
  - Septic shock [Unknown]
  - Sinusitis bacterial [Unknown]
  - Urinary tract infection [Unknown]
  - Foot deformity [Unknown]
  - Explorative laparotomy [Unknown]
  - Bronchitis [Unknown]
  - Pleural effusion [Unknown]
  - Sciatica [Unknown]
  - Leukocytosis [Unknown]
  - Enterocolitis bacterial [Unknown]
  - Sepsis [Unknown]
  - Dysphagia [Unknown]
  - Pyrexia [Unknown]
  - Back pain [Unknown]
  - Pain in extremity [Unknown]
  - Pain in extremity [Unknown]
  - Femur fracture [Unknown]
  - Femur fracture [Unknown]
  - Bone disorder [Unknown]
  - Rib fracture [Unknown]
  - Fall [Unknown]
  - Tooth extraction [Unknown]
  - Bronchitis chronic [Not Recovered/Not Resolved]
  - Asthma [Unknown]
  - Hypercholesterolaemia [Unknown]
  - Limb injury [Unknown]
  - Traumatic haematoma [Recovered/Resolved]
  - Mitral valve prolapse [Unknown]
  - Gait disturbance [Unknown]
  - Hypothyroidism [Unknown]
  - Haemorrhoids [Unknown]
  - Chronic obstructive pulmonary disease [Not Recovered/Not Resolved]
  - Bronchomalacia [Unknown]
  - Aspiration [Not Recovered/Not Resolved]
  - Decubitus ulcer [Unknown]
  - Pain [Not Recovered/Not Resolved]
  - Intestinal polyp [Unknown]
  - Oedema [Unknown]
  - Keloid scar [Unknown]
  - Macular degeneration [Unknown]
  - Rheumatoid arthritis [Unknown]
  - Depression [Unknown]
  - Sinusitis [Unknown]
  - Varicose vein [Unknown]
  - Intervertebral disc protrusion [Unknown]
  - Radiculopathy [Unknown]
  - Antinuclear antibody positive [Unknown]
  - Irritable bowel syndrome [Unknown]
  - Palpitations [Unknown]
  - Ovarian cyst [Unknown]
  - Cardiomegaly [Unknown]
  - Large intestine polyp [Unknown]
  - Urinary tract infection [Unknown]
  - Cataract [Unknown]
  - Diverticulum [Unknown]
  - Polyp [Unknown]
  - Thrombophlebitis superficial [Unknown]
  - Mitral valve incompetence [Unknown]
  - Tricuspid valve incompetence [Unknown]
  - Pulmonary hypertension [Unknown]
  - Gastrooesophageal reflux disease [Unknown]
  - Drug ineffective [Unknown]
  - Headache [Unknown]
